FAERS Safety Report 25352578 (Version 2)
Quarter: 2025Q2

REPORT INFORMATION
  Report Type: Spontaneous
  Country: US (occurrence: US)
  Receive Date: 20250523
  Receipt Date: 20250623
  Transmission Date: 20250717
  Serious: No
  Sender: ROCHE
  Company Number: US-ROCHE-10000291294

PATIENT
  Age: 54 Year

DRUGS (2)
  1. HEMLIBRA [Suspect]
     Active Substance: EMICIZUMAB-KXWH
     Indication: Factor VIII deficiency
     Route: 058
  2. HEMOFIL [Concomitant]
     Active Substance: ANTIHEMOPHILIC FACTOR HUMAN

REACTIONS (3)
  - Drug ineffective [Unknown]
  - Pain [Unknown]
  - Haemorrhage [Unknown]
